FAERS Safety Report 10455470 (Version 1)
Quarter: 2014Q3

REPORT INFORMATION
  Report Type: Spontaneous
  Country: US (occurrence: None)
  Receive Date: 20140815
  Receipt Date: 20140815
  Transmission Date: 20150326
  Serious: No
  Sender: FDA-Public Use
  Company Number: E2007-01789-SPO-US

PATIENT
  Age: 66 Year
  Sex: Female

DRUGS (2)
  1. KEPPRA [Concomitant]
     Active Substance: LEVETIRACETAM
  2. FYCOMPA [Suspect]
     Active Substance: PERAMPANEL
     Indication: CONVULSION
     Route: 048
     Dates: start: 201406, end: 201406

REACTIONS (3)
  - Mental impairment [None]
  - Dysarthria [None]
  - Ataxia [None]

NARRATIVE: CASE EVENT DATE: 201406
